FAERS Safety Report 6517091-4 (Version None)
Quarter: 2009Q4

REPORT INFORMATION
  Report Type: 
  Country: None (occurrence: None)
  Receive Date: 20091223
  Receipt Date: 20091216
  Transmission Date: 20100525
  Serious: Yes (Life-Threatening)
  Sender: FDA-Public Use
  Company Number: B0471574A

PATIENT
  Age: 46 Year
  Sex: Male

DRUGS (1)
  1. MALARONE [Suspect]
     Indication: MALARIA PROPHYLAXIS
     Route: 048
     Dates: start: 20070301, end: 20070303

REACTIONS (6)
  - BLISTER [None]
  - OROPHARYNGEAL BLISTERING [None]
  - PLATELET COUNT DECREASED [None]
  - PURPURA [None]
  - RASH MACULAR [None]
  - THROMBOCYTOPENIA [None]
